FAERS Safety Report 25760791 (Version 2)
Quarter: 2025Q4

REPORT INFORMATION
  Report Type: Spontaneous
  Country: EU (occurrence: EU)
  Receive Date: 20250904
  Receipt Date: 20251013
  Transmission Date: 20260118
  Serious: Yes (Hospitalization, Other)
  Sender: PFIZER
  Company Number: EU-PFM-2025-04143

PATIENT
  Sex: Male

DRUGS (2)
  1. BRAFTOVI [Suspect]
     Active Substance: ENCORAFENIB
     Dosage: 300 MG, DAILY (4 DF PER DAY (300 MG)
     Route: 065
  2. MEKTOVI [Suspect]
     Active Substance: BINIMETINIB
     Dosage: 15 MG, 2X/DAY (30 MG, 2 DF, BID (2/DAY) MORNING AND EVENING)
     Route: 065

REACTIONS (2)
  - Pulmonary embolism [Recovering/Resolving]
  - Muscle spasms [Unknown]
